FAERS Safety Report 6935210-2 (Version None)
Quarter: 2010Q3

REPORT INFORMATION
  Report Type: 
  Country: None (occurrence: None)
  Receive Date: 20100822
  Receipt Date: 20100818
  Transmission Date: 20110219
  Serious: Yes (Death)
  Sender: FDA-Public Use
  Company Number: PHFR2010GB01273

PATIENT
  Sex: Female

DRUGS (1)
  1. CLOZARIL [Suspect]
     Indication: SCHIZOPHRENIA
     Dosage: 50 MG/DAY
     Route: 048
     Dates: start: 20100223

REACTIONS (4)
  - ARTHRALGIA [None]
  - CEREBRAL DISORDER [None]
  - COMA SCALE ABNORMAL [None]
  - LOSS OF CONSCIOUSNESS [None]
